FAERS Safety Report 5027300-9 (Version None)
Quarter: 2006Q2

REPORT INFORMATION
  Report Type: 
  Country: None (occurrence: None)
  Receive Date: 20060615
  Receipt Date: 20060607
  Transmission Date: 20061013
  Serious: Yes (Death, Hospitalization)
  Sender: FDA-Public Use
  Company Number: JP-ABBOTT-06P-087-0335545-00

PATIENT
  Sex: Female

DRUGS (13)
  1. CLARITHROMYCIN [Suspect]
     Indication: NASOPHARYNGITIS
     Route: 048
     Dates: start: 20040129, end: 20040204
  2. CHERRY BARK EXTRACT CODEINE PHOSPHATE [Concomitant]
     Indication: NASOPHARYNGITIS
     Route: 048
     Dates: start: 20040129
  3. THEOPHYLLINE [Concomitant]
     Indication: NASOPHARYNGITIS
     Route: 048
     Dates: start: 20040129
  4. RABEPRAZOLE SODIUM [Concomitant]
     Indication: DRUG USE FOR UNKNOWN INDICATION
     Route: 048
  5. POLYMYXIN B SULFATE [Concomitant]
     Indication: DRUG USE FOR UNKNOWN INDICATION
     Dosage: 1 MIU
     Route: 048
  6. SPIRONOLACTONE [Concomitant]
     Indication: DRUG USE FOR UNKNOWN INDICATION
     Route: 048
  7. FUROSEMIDE [Concomitant]
     Indication: DRUG USE FOR UNKNOWN INDICATION
     Route: 048
  8. HERBAL PREPARATION [Concomitant]
     Indication: DRUG USE FOR UNKNOWN INDICATION
     Route: 048
  9. UNSPECIFIED NUTRITION [Concomitant]
     Indication: HEPATIC FAILURE
     Route: 048
  10. BENZBROMARONE [Concomitant]
     Indication: DRUG USE FOR UNKNOWN INDICATION
     Route: 048
  11. LOXOPROFEN SODIUM [Concomitant]
     Indication: DRUG USE FOR UNKNOWN INDICATION
     Route: 048
  12. HERBAL PREPARATION [Concomitant]
     Route: 048
  13. UNKNOWN MEDICATION [Concomitant]
     Indication: DRUG USE FOR UNKNOWN INDICATION

REACTIONS (1)
  - DEPRESSED LEVEL OF CONSCIOUSNESS [None]
